FAERS Safety Report 6309251-2 (Version None)
Quarter: 2009Q3

REPORT INFORMATION
  Report Type: 
  Country: None (occurrence: None)
  Receive Date: 20090811
  Receipt Date: 20090729
  Transmission Date: 20100115
  Serious: Yes (Hospitalization)
  Sender: FDA-Public Use
  Company Number: 2009CD0178

PATIENT
  Age: 68 Year
  Sex: Female

DRUGS (3)
  1. CEDAX [Suspect]
     Indication: PYREXIA
     Dosage: 400 MG TABLET, DAILY500 MG TABLET, DAILY
     Dates: start: 20090715, end: 20090717
  2. KLACID (CLARITHROMYCIN) 500 MG [Suspect]
     Indication: PYREXIA
     Dates: start: 20090715, end: 20090717
  3. IRBESARTAN [Concomitant]

REACTIONS (6)
  - FACE OEDEMA [None]
  - HEPATITIS ACUTE [None]
  - LOCALISED OEDEMA [None]
  - MUCOSAL INFLAMMATION [None]
  - PAROTID GLAND ENLARGEMENT [None]
  - SERUM FERRITIN INCREASED [None]
